FAERS Safety Report 20831238 (Version 1)
Quarter: 2022Q2

REPORT INFORMATION
  Report Type: Spontaneous
  Country: JP (occurrence: JP)
  Receive Date: 20220515
  Receipt Date: 20220515
  Transmission Date: 20220721
  Serious: Yes (Hospitalization, Other)
  Sender: FDA-Public Use
  Company Number: JP-NOVARTISPH-NVSJ2022JP089570

PATIENT
  Age: 77 Year
  Sex: Male

DRUGS (1)
  1. VOTRIENT [Suspect]
     Active Substance: PAZOPANIB HYDROCHLORIDE
     Indication: Sarcoma
     Dosage: 400 MG
     Route: 048
     Dates: end: 20220510

REACTIONS (2)
  - Thrombophlebitis migrans [Recovered/Resolved with Sequelae]
  - Bradycardia [Not Recovered/Not Resolved]

NARRATIVE: CASE EVENT DATE: 20220427
